FAERS Safety Report 8382327-4 (Version None)
Quarter: 2012Q2

REPORT INFORMATION
  Report Type: 
  Country: None (occurrence: None)
  Receive Date: 20120524
  Receipt Date: 20120517
  Transmission Date: 20120825
  Serious: Yes (Other)
  Sender: FDA-Public Use
  Company Number: AU-JNJFOC-20120515114

PATIENT
  Sex: Female

DRUGS (9)
  1. STELARA [Suspect]
     Route: 058
     Dates: start: 20111211
  2. STELARA [Suspect]
     Route: 058
     Dates: start: 20100726
  3. STELARA [Suspect]
     Indication: PSORIASIS
     Route: 058
     Dates: start: 20110111
  4. STELARA [Suspect]
     Route: 058
     Dates: start: 20101021
  5. STELARA [Suspect]
     Route: 058
     Dates: start: 20110627
  6. STELARA [Suspect]
     Route: 058
     Dates: start: 20111002
  7. STELARA [Suspect]
     Route: 058
     Dates: start: 20100626
  8. STELARA [Suspect]
     Route: 058
     Dates: start: 20110404
  9. STELARA [Suspect]
     Route: 058
     Dates: start: 20120312

REACTIONS (2)
  - AXILLARY MASS [None]
  - INFECTION [None]
